FAERS Safety Report 23911412 (Version 1)
Quarter: 2024Q2

REPORT INFORMATION
  Report Type: Spontaneous
  Country: FR (occurrence: FR)
  Receive Date: 20240528
  Receipt Date: 20240528
  Transmission Date: 20240715
  Serious: Yes (Life-Threatening)
  Sender: FDA-Public Use
  Company Number: None

PATIENT
  Age: 56 Year
  Sex: Male
  Weight: 96 kg

DRUGS (6)
  1. DROPERIDOL [Suspect]
     Active Substance: DROPERIDOL
     Indication: Prophylaxis of nausea and vomiting
     Dosage: 2.5 MG
     Route: 041
     Dates: start: 20240308, end: 20240308
  2. NICARDIPINE [Suspect]
     Active Substance: NICARDIPINE
     Indication: Hypertension
     Dosage: 15 MG
     Route: 042
     Dates: start: 20240308, end: 20240308
  3. NIMOTOP [Suspect]
     Active Substance: NIMODIPINE
     Indication: Cerebrovascular accident prophylaxis
     Dosage: 7 MG
     Route: 042
     Dates: start: 20240308, end: 20240308
  4. ONDANSETRON [Suspect]
     Active Substance: ONDANSETRON
     Indication: Prophylaxis of nausea and vomiting
     Dosage: 4 MG
     Route: 042
     Dates: start: 20240308, end: 20240308
  5. IOBITRIDOL [Suspect]
     Active Substance: IOBITRIDOL
     Dosage: 80 ML
     Route: 042
     Dates: start: 20240308, end: 20240308
  6. IOBITRIDOL [Suspect]
     Active Substance: IOBITRIDOL
     Indication: Angiogram cerebral
     Dosage: 40 ML
     Route: 042
     Dates: start: 20240308, end: 20240308

REACTIONS (1)
  - Anaphylactic shock [Recovered/Resolved]

NARRATIVE: CASE EVENT DATE: 20240308
